FAERS Safety Report 8067414-2 (Version None)
Quarter: 2012Q1

REPORT INFORMATION
  Report Type: 
  Country: None (occurrence: None)
  Receive Date: 20120124
  Receipt Date: 20111226
  Transmission Date: 20120608
  Serious: Yes (Hospitalization)
  Sender: FDA-Public Use
  Company Number: FR-ABBOTT-11P-056-0887031-00

PATIENT
  Age: 10 Year
  Sex: Male

DRUGS (2)
  1. VALPROIC ACID [Suspect]
     Indication: PRODUCT USED FOR UNKNOWN INDICATION
     Route: 048
     Dates: start: 20090701
  2. VALPROIC ACID [Suspect]
     Route: 048

REACTIONS (3)
  - DIZZINESS [None]
  - TINNITUS [None]
  - DRUG LEVEL DECREASED [None]
